FAERS Safety Report 9705265 (Version 2)
Quarter: 2013Q4

REPORT INFORMATION
  Report Type: Report from Study
  Country: US (occurrence: US)
  Receive Date: 20131122
  Receipt Date: 20131219
  Transmission Date: 20140711
  Serious: Yes (Other)
  Sender: FDA-Public Use
  Company Number: US-ACTELION-A-US2013-91396

PATIENT
  Age: 61 Year
  Sex: Female

DRUGS (11)
  1. VENTAVIS [Suspect]
     Indication: PULMONARY ARTERIAL HYPERTENSION
     Dosage: 5 MCG, 3-4 X /DAY
     Route: 055
  2. PLAQUENIL [Suspect]
  3. TRACLEER [Concomitant]
     Indication: PULMONARY ARTERIAL HYPERTENSION
     Route: 048
  4. SILDENAFIL [Concomitant]
  5. ARAVA [Concomitant]
     Dosage: 20 MG, UNK
  6. METHOTREXATE [Concomitant]
     Dosage: 10 MG, Q1WEEK
  7. LISINOPRIL [Concomitant]
     Dosage: 40 MG, UNK
  8. BENICAR [Concomitant]
  9. SYMBICORT [Concomitant]
     Dosage: 1 PUFF, BID
  10. FOLIC ACID [Concomitant]
     Dosage: 0.8 MG, UNK
  11. FISH OIL [Concomitant]
     Dosage: 1000 MG, UNK

REACTIONS (4)
  - Systemic lupus erythematosus [Unknown]
  - Malaise [Unknown]
  - Drug dose omission [Unknown]
  - Cough [Not Recovered/Not Resolved]
